FAERS Safety Report 6877171-0 (Version None)
Quarter: 2010Q3

REPORT INFORMATION
  Report Type: 
  Country: None (occurrence: None)
  Receive Date: 20100727
  Receipt Date: 20100727
  Transmission Date: 20110219
  Serious: Yes (Other)
  Sender: FDA-Public Use
  Company Number: None

PATIENT
  Sex: Male
  Weight: 69.4003 kg

DRUGS (2)
  1. GEMCITABINE [Suspect]
     Indication: PANCREATIC CARCINOMA
     Dosage: 1000MG/M2 EVERY 2 WEEKS IV DRIP
     Route: 041
     Dates: start: 20100202, end: 20100714
  2. CAPECITABINE [Suspect]
     Indication: PANCREATIC CARCINOMA
     Dosage: 1000MG/M2 BID DAYS 1-7/14 PO
     Route: 048
     Dates: start: 20100623, end: 20100707

REACTIONS (3)
  - FACE OEDEMA [None]
  - HYPERSENSITIVITY [None]
  - LIP OEDEMA [None]
